FAERS Safety Report 23301781 (Version 2)
Quarter: 2024Q1

REPORT INFORMATION
  Report Type: Spontaneous
  Country: US (occurrence: US)
  Receive Date: 20231215
  Receipt Date: 20240313
  Transmission Date: 20240410
  Serious: No
  Sender: FDA-Public Use
  Company Number: US-SA-SAC20231213000044

PATIENT
  Age: 62 Year
  Sex: Female

DRUGS (1)
  1. DUPIXENT [Suspect]
     Active Substance: DUPILUMAB
     Indication: Nasal polyps
     Dosage: 300 MG, QOW
     Route: 058

REACTIONS (6)
  - Bronchitis [Unknown]
  - Seasonal allergy [Unknown]
  - Condition aggravated [Unknown]
  - Injection site bruising [Unknown]
  - Drug ineffective [Unknown]
  - Therapeutic response unexpected [Unknown]
